FAERS Safety Report 5154623-5 (Version None)
Quarter: 2006Q4

REPORT INFORMATION
  Report Type: 
  Country: None (occurrence: None)
  Receive Date: 20061113
  Receipt Date: 20061031
  Transmission Date: 20070319
  Serious: Yes (Life-Threatening, Hospitalization)
  Sender: FDA-Public Use
  Company Number: T200601271

PATIENT
  Age: 3 Year
  Sex: Male

DRUGS (1)
  1. METHADOSE(METHADONE HYDROCHLORIDE) [Suspect]

REACTIONS (8)
  - ACCIDENTAL EXPOSURE [None]
  - APNOEA [None]
  - BLOOD GLUCOSE INCREASED [None]
  - COMA [None]
  - HEART RATE INCREASED [None]
  - MIOSIS [None]
  - RESPIRATORY ACIDOSIS [None]
  - RESPIRATORY RATE INCREASED [None]
